FAERS Safety Report 25950083 (Version 1)
Quarter: 2025Q4

REPORT INFORMATION
  Report Type: Spontaneous
  Country: EU (occurrence: EU)
  Receive Date: 20251022
  Receipt Date: 20251022
  Transmission Date: 20260117
  Serious: Yes (Hospitalization, Other)
  Sender: SK LIFE SCIENCE
  Company Number: None

PATIENT

DRUGS (6)
  1. XCOPRI [Suspect]
     Active Substance: CENOBAMATE
     Indication: Epileptic encephalopathy
     Dosage: 75 MG/DAY
     Route: 048
     Dates: start: 202405, end: 202407
  2. KEPPRA [Suspect]
     Active Substance: LEVETIRACETAM
     Indication: Epileptic encephalopathy
     Dosage: 1500 MG (1? TABLETS) IN THE MORNING AND 1500 MG IN THE EVENING
     Route: 048
  3. TEGRETOL [Suspect]
     Active Substance: CARBAMAZEPINE
     Indication: Epileptic encephalopathy
     Dosage: 1 TABLET OF 400 MG IN THE MORNING, 1 MODIFIED-RELEASE TABLET OF 400 MG IN THE EVENING, 1 TABLET OF 2
     Route: 048
  4. RIVOTRIL [Concomitant]
     Active Substance: CLONAZEPAM
     Indication: Product used for unknown indication
     Dosage: RIVOTRIL 2.5 MG/ML. 10 DROPS IN THE MORNING, 10 DROPS AT MIDDAY, 10 DROPS IN THE EVENING.
     Route: 048
  5. PHENOBARBITAL [Concomitant]
     Active Substance: PHENOBARBITAL
     Indication: Epileptic encephalopathy
     Dosage: 25 MG IN THE MORNING (HALF A TABLET), 1 TABLET OF 50 MG IN THE EVENING.
     Route: 048
  6. CANNABIDIOL [Concomitant]
     Active Substance: CANNABIDIOL
     Indication: Epileptic encephalopathy
     Dosage: SOLUTION 10 G 100 ML. 3 ML AT MIDDAY, 3 ML IN THE EVENING.
     Route: 048

REACTIONS (6)
  - Gastrooesophageal reflux disease [Recovering/Resolving]
  - Oesophagitis [Recovering/Resolving]
  - Vomiting [Not Recovered/Not Resolved]
  - Off label use [Recovering/Resolving]
  - Off label use [Unknown]
  - Drug interaction [Recovering/Resolving]

NARRATIVE: CASE EVENT DATE: 20240501
